FAERS Safety Report 24717511 (Version 3)
Quarter: 2025Q1

REPORT INFORMATION
  Report Type: Report from Study
  Country: US (occurrence: US)
  Receive Date: 20241210
  Receipt Date: 20250108
  Transmission Date: 20250408
  Serious: Yes (Hospitalization)
  Sender: EISAI
  Company Number: US-Eisai-EC-2024-180101

PATIENT
  Age: 69 Year
  Sex: Male

DRUGS (2)
  1. LENVIMA [Suspect]
     Active Substance: LENVATINIB
     Indication: Hepatic cancer
     Route: 048
     Dates: start: 20241125, end: 20241130
  2. LENVIMA [Suspect]
     Active Substance: LENVATINIB
     Indication: Cholangiocarcinoma
     Route: 048
     Dates: start: 202412

REACTIONS (13)
  - Back pain [Unknown]
  - Blood pressure increased [Unknown]
  - Ascites [Unknown]
  - Abdominal pain upper [Unknown]
  - Abdominal pain [Unknown]
  - Diarrhoea [Unknown]
  - Constipation [Unknown]
  - Confusional state [Unknown]
  - Fatigue [Unknown]
  - Decreased appetite [Unknown]
  - Fall [Unknown]
  - Rib fracture [Unknown]
  - Sternal fracture [Unknown]

NARRATIVE: CASE EVENT DATE: 20240101
